FAERS Safety Report 6171726-7 (Version None)
Quarter: 2009Q2

REPORT INFORMATION
  Report Type: 
  Country: None (occurrence: None)
  Receive Date: 20090429
  Receipt Date: 20090423
  Transmission Date: 20091009
  Serious: Yes (Hospitalization)
  Sender: FDA-Public Use
  Company Number: B0571511A

PATIENT
  Sex: Female
  Weight: 83 kg

DRUGS (5)
  1. LAPATINIB [Suspect]
     Indication: BREAST CANCER METASTATIC
     Dosage: 1250MG PER DAY
     Route: 048
     Dates: start: 20090311
  2. DOCETAXEL [Suspect]
     Indication: BREAST CANCER METASTATIC
     Route: 042
     Dates: start: 20090311
  3. OXYCONTIN [Concomitant]
     Indication: PAIN
     Dates: start: 20090101
  4. PANAMAX [Concomitant]
     Indication: PAIN
     Dates: start: 20081201
  5. CALTRATE [Concomitant]
     Indication: SUPPLEMENTATION THERAPY
     Dates: start: 20081201

REACTIONS (2)
  - FEBRILE NEUTROPENIA [None]
  - OROPHARYNGEAL PAIN [None]
